FAERS Safety Report 20805456 (Version 1)
Quarter: 2022Q2

REPORT INFORMATION
  Report Type: Other
  Country: None (occurrence: AU)
  Receive Date: 20220510
  Receipt Date: 20220510
  Transmission Date: 20220720
  Serious: Yes (Other)
  Sender: FDA-Public Use
  Company Number: AU-Adaptis Pharma Private Limited-2128619

PATIENT
  Age: 5 Year
  Sex: Male

DRUGS (2)
  1. MONTELUKAST SODIUM [Suspect]
     Active Substance: MONTELUKAST SODIUM
     Indication: Asthma
     Route: 065
  2. Inhaled corticosteroids [Concomitant]
     Route: 065

REACTIONS (5)
  - Agitation [Recovering/Resolving]
  - Anxiety [Recovering/Resolving]
  - Nightmare [Not Recovered/Not Resolved]
  - Panic attack [Recovering/Resolving]
  - Hallucination, auditory [Recovering/Resolving]
